FAERS Safety Report 4901279-X (Version None)
Quarter: 2006Q1

REPORT INFORMATION
  Report Type: 
  Country: None (occurrence: None)
  Receive Date: 20060206
  Receipt Date: 20050421
  Transmission Date: 20060701
  Serious: Yes (Hospitalization)
  Sender: FDA-Public Use
  Company Number: JP-AVENTIS-200610154JP

PATIENT
  Age: 32 Year
  Sex: Female

DRUGS (25)
  1. ARAVA [Suspect]
     Indication: RHEUMATOID ARTHRITIS
     Route: 048
     Dates: start: 20031020, end: 20040412
  2. ARAVA [Suspect]
     Route: 048
     Dates: start: 20040413, end: 20050416
  3. TRANSAMIN [Concomitant]
     Dosage: DOSE: 6 CAPSULES
     Route: 048
  4. TRANSAMIN [Concomitant]
     Dosage: DOSE: 1 VIAL
     Route: 051
  5. ADONA [Concomitant]
     Dosage: DOSE: 3 TABLETS
     Route: 048
  6. ADONA [Concomitant]
     Dosage: DOSE: 1 VIAL
     Route: 042
  7. CHLOMY [Concomitant]
     Dosage: DOSE: 1 TABLETS
     Route: 067
  8. BUFFERIN [Concomitant]
     Route: 048
  9. MUCOSTA [Concomitant]
     Dosage: DOSE: 3 TABLETS
     Route: 048
  10. EXCELASE [Concomitant]
     Dosage: DOSE: 3 CAPSULES
     Route: 048
  11. FORSENID [Concomitant]
     Dosage: DOSE: 3 TABLETS
     Route: 048
  12. RECTOSELLAN [Concomitant]
     Dosage: DOSE: 1 PIECE
     Route: 054
  13. ATROPINE SULFATE [Concomitant]
     Dosage: DOSE: 1 VIAL
     Route: 051
  14. PRIMPERAN INJ [Concomitant]
     Dosage: DOSE: 1 VIAL
     Route: 051
  15. CERCINE [Concomitant]
     Dosage: DOSE: 2 VIALS
     Route: 051
  16. SOSEGON [Concomitant]
     Dosage: DOSE: 1 VIAL
     Route: 051
  17. IRON PREPARATIONS [Concomitant]
     Dosage: DOSE: 1 VIAL
  18. CEFAZOLIN [Concomitant]
     Dosage: DOSE: 2  BOTTLES
     Route: 051
  19. CEFAZOLIN [Concomitant]
     Dosage: DOSE: 4 BOTTLES
     Route: 051
  20. SAVIOSOL [Concomitant]
     Dosage: DOSE: 1 PACK
     Route: 041
  21. PROSTARMON F [Concomitant]
     Dosage: DOSE: 2 VIALS
     Route: 051
  22. APRESOLINE [Concomitant]
     Dosage: DOSE: 2 VIALS
     Route: 051
  23. LACTEC [Concomitant]
     Dosage: DOSE: 1 PACK
     Route: 041
  24. ACTIT [Concomitant]
     Dosage: DOSE: 1 BOTTLE
     Route: 041
  25. KETALAR [Concomitant]
     Dosage: DOSE: 1 BOTTLE
     Route: 030

REACTIONS (5)
  - BLOOD PRESSURE INCREASED [None]
  - CAESAREAN SECTION [None]
  - DRUG EXPOSURE DURING PREGNANCY [None]
  - FOETAL GROWTH RETARDATION [None]
  - PRE-ECLAMPSIA [None]
